FAERS Safety Report 5626936-1 (Version None)
Quarter: 2008Q1

REPORT INFORMATION
  Report Type: 
  Country: None (occurrence: None)
  Receive Date: 20080212
  Receipt Date: 20080127
  Transmission Date: 20080703
  Serious: Yes (Other)
  Sender: FDA-Public Use
  Company Number: 2008S1001457

PATIENT
  Sex: Female

DRUGS (6)
  1. VINCRISTINE [Suspect]
     Indication: EWING'S SARCOMA
  2. DOXORUBICIN HCL [Suspect]
     Indication: EWING'S SARCOMA
  3. CYCLOPHOSHAMIDE [Suspect]
     Indication: EWING'S SARCOMA
  4. IFOSFAMIDE [Suspect]
  5. ETOPOSIDE [Suspect]
     Indication: EWING'S SARCOMA
  6. NAFARELIN [Suspect]
     Indication: EWING'S SARCOMA

REACTIONS (12)
  - ABDOMINAL PAIN LOWER [None]
  - AMENORRHOEA [None]
  - DISEASE RECURRENCE [None]
  - DYSURIA [None]
  - HAEMATOCOLPOS [None]
  - HAEMATURIA [None]
  - NEUTROPENIA [None]
  - OVARIAN FAILURE [None]
  - PYURIA [None]
  - VAGINAL OBSTRUCTION [None]
  - VAGINAL PAIN [None]
  - VULVOVAGINAL ADHESION [None]
